FAERS Safety Report 8088313-6 (Version None)
Quarter: 2012Q1

REPORT INFORMATION
  Report Type: 
  Country: None (occurrence: None)
  Receive Date: 20120128
  Receipt Date: 20110606
  Transmission Date: 20120608
  Serious: No
  Sender: FDA-Public Use
  Company Number: US-ABBOTT-11P-163-0730649-00

PATIENT
  Age: 24 Year
  Sex: Female

DRUGS (5)
  1. OTC MULTIVIT [Concomitant]
     Indication: NUTRITIONAL SUPPORT
  2. VICODIN [Concomitant]
     Indication: PAIN
     Dosage: 5/500MG, 1-2 EVERY 4-6 HOURS AS NEEDED
  3. ASACOL [Concomitant]
     Indication: CROHN'S DISEASE
  4. RECLIPSSEN [Concomitant]
     Indication: CONTRACEPTION
     Dosage: 15MG/30MG
  5. HUMIRA [Suspect]
     Indication: CROHN'S DISEASE
     Dates: start: 20101110

REACTIONS (1)
  - PAIN [None]
